FAERS Safety Report 4979459-7 (Version None)
Quarter: 2006Q2

REPORT INFORMATION
  Report Type: 
  Country: None (occurrence: None)
  Receive Date: 20060421
  Receipt Date: 20060327
  Transmission Date: 20061013
  Serious: Yes (Life-Threatening, Hospitalization)
  Sender: FDA-Public Use
  Company Number: GBWYE511828MAR06

PATIENT
  Sex: Male

DRUGS (19)
  1. ENBREL [Suspect]
     Indication: RHEUMATOID ARTHRITIS
     Dosage: UNKNOWN
     Route: 058
     Dates: start: 20050713, end: 20051020
  2. HUMIRA [Concomitant]
     Dosage: UNKNOWN
     Route: 065
     Dates: start: 20051101
  3. SULFASALAZINE [Concomitant]
     Route: 065
  4. CODEINE PHOSPHATE/PARACETAMOL [Concomitant]
     Route: 065
  5. ALENDRONATE SODIUM [Concomitant]
     Route: 065
  6. LANSOPRAZOLE [Concomitant]
     Route: 065
  7. HYDROXYCHLOROQUINE SULFATE [Concomitant]
     Route: 065
  8. ETODOLAC [Concomitant]
     Route: 065
  9. ASPIRIN [Concomitant]
     Route: 065
  10. ATENOLOL [Concomitant]
     Route: 065
  11. SIMVASTATIN [Concomitant]
     Route: 065
  12. AMITRIPTYLINE HCL [Concomitant]
     Route: 065
  13. LACTULOSE [Concomitant]
     Route: 065
  14. ETHAMBUTOL [Concomitant]
     Route: 065
  15. ISONIAZID W/ RIFAMPICIN [Concomitant]
     Route: 065
  16. PYRAZINAMIDE [Concomitant]
     Route: 065
  17. ZOPICLONE [Concomitant]
     Route: 065
  18. PREDNISOLONE [Concomitant]
     Route: 065
  19. CALCICHEW [Concomitant]
     Route: 065

REACTIONS (4)
  - ARTHRALGIA [None]
  - ATELECTASIS [None]
  - PULMONARY TUBERCULOSIS [None]
  - WEIGHT DECREASED [None]
